FAERS Safety Report 21758988 (Version 2)
Quarter: 2022Q4

REPORT INFORMATION
  Report Type: Spontaneous
  Country: IT (occurrence: IT)
  Receive Date: 20221221
  Receipt Date: 20221229
  Transmission Date: 20230112
  Serious: Yes (Hospitalization, Other)
  Sender: FDA-Public Use
  Company Number: IT-MLMSERVICE-20221209-3972572-1

PATIENT
  Age: 56 Year
  Sex: Male

DRUGS (3)
  1. TACROLIMUS [Suspect]
     Active Substance: TACROLIMUS
     Indication: Immunosuppressant drug level
     Dosage: 3 MILLIGRAM, QD
  2. MYCOPHENOLATE MOFETIL [Concomitant]
     Active Substance: MYCOPHENOLATE MOFETIL
     Indication: Immunosuppressant drug level
     Dosage: 1 GRAM, QD
  3. PREDNISONE [Concomitant]
     Active Substance: PREDNISONE
     Indication: Immunosuppressant drug level
     Dosage: 5 MILLIGRAM, QD

REACTIONS (10)
  - Purtscher retinopathy [Recovered/Resolved]
  - Retinal microangiopathy [Recovered/Resolved]
  - Retinal ischaemia [Recovered/Resolved]
  - Immune-mediated myositis [Recovered/Resolved]
  - Glaucoma [Recovered/Resolved]
  - Retinal haemorrhage [Recovered/Resolved]
  - Ocular hypertension [Recovered/Resolved]
  - Myositis [Recovered/Resolved]
  - Visual acuity reduced [Not Recovered/Not Resolved]
  - Toxicity to various agents [Recovered/Resolved]
